FAERS Safety Report 5096463-1 (Version None)
Quarter: 2006Q3

REPORT INFORMATION
  Report Type: 
  Country: None (occurrence: None)
  Receive Date: 20060830
  Receipt Date: 20060814
  Transmission Date: 20061208
  Serious: Yes (Other)
  Sender: FDA-Public Use
  Company Number: 8018502

PATIENT
  Sex: Male

DRUGS (4)
  1. METHYLPHENIDATE HCL [Suspect]
     Dosage: 10 MG 2/D
  2. CONCERTA [Suspect]
     Dosage: 18 MG/D PO
     Route: 048
  3. CONCERTA [Suspect]
     Dosage: 36 MG/D PO
     Route: 048
  4. CONCERTA [Suspect]
     Dosage: 18 MG/D PO
     Route: 048

REACTIONS (1)
  - CHEST PAIN [None]
